FAERS Safety Report 24390470 (Version 1)
Quarter: 2024Q4

REPORT INFORMATION
  Report Type: Spontaneous
  Country: KR (occurrence: KR)
  Receive Date: 20241003
  Receipt Date: 20241003
  Transmission Date: 20250115
  Serious: Yes (Other)
  Sender: BRISTOL MYERS SQUIBB
  Company Number: KR-BRISTOL-MYERS SQUIBB COMPANY-2024-154351

PATIENT
  Age: 49 Year
  Sex: Female
  Weight: 76.8 kg

DRUGS (19)
  1. BARACLUDE [Suspect]
     Active Substance: ENTECAVIR
     Indication: Product used for unknown indication
     Dates: start: 20170925
  2. DEXAMETHASONE SODIUM PHOSPHATE [Concomitant]
     Active Substance: DEXAMETHASONE SODIUM PHOSPHATE
     Indication: Product used for unknown indication
     Dates: start: 20180717, end: 20180717
  3. DEXAMETHASONE SODIUM PHOSPHATE [Concomitant]
     Active Substance: DEXAMETHASONE SODIUM PHOSPHATE
     Dates: start: 20180731, end: 20180731
  4. CHLORPHENIRAMINE MALEATE [Concomitant]
     Active Substance: CHLORPHENIRAMINE MALEATE
     Indication: Product used for unknown indication
     Dates: start: 20180618, end: 20180618
  5. CHLORPHENIRAMINE MALEATE [Concomitant]
     Active Substance: CHLORPHENIRAMINE MALEATE
     Dates: start: 20180626, end: 20180626
  6. CHLORPHENIRAMINE MALEATE [Concomitant]
     Active Substance: CHLORPHENIRAMINE MALEATE
     Dates: start: 20180717, end: 20180717
  7. CHLORPHENIRAMINE MALEATE [Concomitant]
     Active Substance: CHLORPHENIRAMINE MALEATE
     Dates: start: 20180726, end: 20180726
  8. CHLORPHENIRAMINE MALEATE [Concomitant]
     Active Substance: CHLORPHENIRAMINE MALEATE
     Dates: start: 20180731, end: 20180731
  9. DEXAMETHASONE [Concomitant]
     Active Substance: DEXAMETHASONE
     Indication: Product used for unknown indication
     Dates: start: 20180618, end: 20180618
  10. DEXAMETHASONE [Concomitant]
     Active Substance: DEXAMETHASONE
     Dates: start: 20180626, end: 20180626
  11. PACLITAXEL [Concomitant]
     Active Substance: PACLITAXEL
     Indication: Product used for unknown indication
     Dates: start: 20180618, end: 20180618
  12. PACLITAXEL [Concomitant]
     Active Substance: PACLITAXEL
     Dates: start: 20180626, end: 20180626
  13. PACLITAXEL [Concomitant]
     Active Substance: PACLITAXEL
     Dates: start: 20180703, end: 20180703
  14. PACLITAXEL [Concomitant]
     Active Substance: PACLITAXEL
     Dates: start: 20180717, end: 20180717
  15. PACLITAXEL [Concomitant]
     Active Substance: PACLITAXEL
     Dates: start: 20180726, end: 20180726
  16. PACLITAXEL [Concomitant]
     Active Substance: PACLITAXEL
     Dates: start: 20180731, end: 20180731
  17. PREGABALIN [Concomitant]
     Active Substance: PREGABALIN
     Indication: Product used for unknown indication
     Dates: start: 20180312
  18. RANITIDINE HYDROCHLORIDE [Concomitant]
     Active Substance: RANITIDINE HYDROCHLORIDE
     Indication: Product used for unknown indication
     Dates: start: 20180618, end: 20180618
  19. RANITIDINE HYDROCHLORIDE [Concomitant]
     Active Substance: RANITIDINE HYDROCHLORIDE
     Dates: start: 20180626, end: 20180626

REACTIONS (1)
  - Ascites [Unknown]

NARRATIVE: CASE EVENT DATE: 20180814
